FAERS Safety Report 5782463-2 (Version None)
Quarter: 2008Q2

REPORT INFORMATION
  Report Type: 
  Country: None (occurrence: None)
  Receive Date: 20080623
  Receipt Date: 20080612
  Transmission Date: 20081010
  Serious: Yes (Death, Hospitalization)
  Sender: FDA-Public Use
  Company Number: PHBS2008KR04877

PATIENT
  Age: 37 Year
  Sex: Male

DRUGS (2)
  1. CYCLOSPORINE [Suspect]
     Indication: STEM CELL TRANSPLANT
     Dosage: UNK
  2. PREDNISOLONE [Concomitant]

REACTIONS (17)
  - AGITATION [None]
  - ALTERED STATE OF CONSCIOUSNESS [None]
  - AZOTAEMIA [None]
  - BLOOD UREA INCREASED [None]
  - CENTRAL PONTINE MYELINOLYSIS [None]
  - DEMYELINATION [None]
  - EYE MOVEMENT DISORDER [None]
  - GLASGOW COMA SCALE ABNORMAL [None]
  - GRAFT VERSUS HOST DISEASE [None]
  - HEPATIC FUNCTION ABNORMAL [None]
  - HYPERBILIRUBINAEMIA [None]
  - IMMUNOSUPPRESSANT DRUG LEVEL INCREASED [None]
  - INTRAVENTRICULAR HAEMORRHAGE [None]
  - MENTAL STATUS CHANGES [None]
  - PSYCHOTIC DISORDER [None]
  - SKIN EXFOLIATION [None]
  - URINE OUTPUT DECREASED [None]
